FAERS Safety Report 8906369 (Version 1)
Quarter: 2012Q4

REPORT INFORMATION
  Report Type: Spontaneous
  Country: US (occurrence: None)
  Receive Date: 20121112
  Receipt Date: 20121112
  Transmission Date: 20130627
  Serious: Yes (Other)
  Sender: FDA-Public Use
  Company Number: None

PATIENT
  Age: 66 Year
  Sex: Female
  Weight: 55.79 kg

DRUGS (1)
  1. ZYPREXA [Suspect]
     Indication: DEPRESSION
     Dosage: 15 mg QD PO
     Route: 048
     Dates: start: 20121015, end: 20121023

REACTIONS (9)
  - Ataxia [None]
  - Blood glucose increased [None]
  - Asthenia [None]
  - Dizziness [None]
  - Somnolence [None]
  - Gait disturbance [None]
  - Lacrimation increased [None]
  - Vision blurred [None]
  - Weight increased [None]
